FAERS Safety Report 9411450 (Version 1)
Quarter: 2013Q3

REPORT INFORMATION
  Report Type: Spontaneous
  Country: US (occurrence: None)
  Receive Date: 20130718
  Receipt Date: 20130718
  Transmission Date: 20140515
  Serious: No
  Sender: FDA-Public Use
  Company Number: None

PATIENT
  Age: 33 Year
  Sex: Male

DRUGS (1)
  1. RISPERDAL [Suspect]
     Indication: SCHIZOAFFECTIVE DISORDER
     Dosage: 50MG  EVERY 14 DAYS  IM
     Route: 030
     Dates: start: 20130709, end: 20130709

REACTIONS (2)
  - Needle issue [None]
  - Incorrect dose administered [None]
